FAERS Safety Report 4690002-2 (Version None)
Quarter: 2005Q2

REPORT INFORMATION
  Report Type: 
  Country: None (occurrence: None)
  Receive Date: 20050513
  Receipt Date: 20050225
  Transmission Date: 20051028
  Serious: Yes (Other)
  Sender: FDA-Public Use
  Company Number: 16871

PATIENT
  Sex: Male
  Weight: 136.0791 kg

DRUGS (1)
  1. DIPYRIDAMOLE INJ. 10MG/2ML - BEN VENUE LABS, INC. [Suspect]
     Indication: CARDIAC STRESS TEST
     Dosage: 60.1MG
     Dates: start: 20041213

REACTIONS (1)
  - PAIN [None]
